FAERS Safety Report 9676525 (Version 4)
Quarter: 2014Q1

REPORT INFORMATION
  Report Type: Spontaneous
  Country: SG (occurrence: SG)
  Receive Date: 20131107
  Receipt Date: 20140307
  Transmission Date: 20141002
  Serious: Yes (Hospitalization)
  Sender: FDA-Public Use
  Company Number: SG-ROCHE-1298476

PATIENT
  Age: 46 Year
  Sex: Female
  Weight: 32.8 kg

DRUGS (10)
  1. PERJETA [Suspect]
     Indication: BREAST CANCER METASTATIC
     Route: 042
     Dates: start: 20130222, end: 20130702
  2. TAXOL [Concomitant]
     Indication: BREAST CANCER METASTATIC
     Dosage: 60-120MG WEEKLY.
     Route: 042
     Dates: start: 20070112, end: 20130702
  3. HERCEPTIN [Concomitant]
     Indication: BREAST CANCER METASTATIC
     Route: 042
     Dates: start: 20070112
  4. LETROZOLE [Concomitant]
  5. EXEMESTANE [Concomitant]
  6. GEMCITABINE [Concomitant]
  7. CARBOPLATIN [Concomitant]
  8. CAPECITABINE [Concomitant]
  9. LAPATINIB [Concomitant]
  10. CYCLOPHOSPHAMIDE [Concomitant]

REACTIONS (3)
  - Pneumonitis [Recovered/Resolved]
  - Oedema peripheral [Unknown]
  - Palpitations [Unknown]
